FAERS Safety Report 5091941-3 (Version None)
Quarter: 2006Q3

REPORT INFORMATION
  Report Type: 
  Country: None (occurrence: None)
  Receive Date: 20060825
  Receipt Date: 20060811
  Transmission Date: 20061208
  Serious: Yes (Other)
  Sender: FDA-Public Use
  Company Number: 111963ISR

PATIENT
  Age: 58 Year
  Sex: Female

DRUGS (4)
  1. CALCIUM FOLINATE [Suspect]
     Indication: COLON CANCER METASTATIC
  2. FLUOROURACIL [Suspect]
     Indication: COLON CANCER METASTATIC
  3. IRINOTECAN HCL [Suspect]
     Indication: COLON CANCER METASTATIC
  4. DIAMORPHINE [Concomitant]

REACTIONS (1)
  - CONFUSIONAL STATE [None]
